FAERS Safety Report 24340744 (Version 1)
Quarter: 2024Q3

REPORT INFORMATION
  Report Type: Spontaneous
  Country: CN (occurrence: CN)
  Receive Date: 20240919
  Receipt Date: 20240919
  Transmission Date: 20241017
  Serious: Yes (Hospitalization)
  Sender: ELI LILLY AND CO
  Company Number: CN-Merck Healthcare KGaA-2024048406

PATIENT
  Age: 67 Year
  Sex: Male

DRUGS (3)
  1. ERBITUX [Suspect]
     Active Substance: CETUXIMAB
     Indication: Tongue neoplasm malignant stage unspecified
     Dosage: 600 MG, OTHER (400MG/M2 IN THE FIRST WEEK, SUBSEQUENTLY WEEKLY REGIMEN WITH 250MG/M2 PER WEEK)
     Route: 041
     Dates: start: 20240823, end: 20240823
  2. DOCETAXEL [Suspect]
     Active Substance: DOCETAXEL\DOCETAXEL ANHYDROUS
     Indication: Tongue neoplasm malignant stage unspecified
     Dosage: 110 MG, DAILY
     Route: 041
     Dates: start: 20240823, end: 20240823
  3. CISPLATIN [Suspect]
     Active Substance: CISPLATIN
     Indication: Tongue neoplasm malignant stage unspecified
     Dosage: 40 MG, OTHER (D1-3 INTRAVENOUS DRIP/21 DAYS)
     Route: 041
     Dates: start: 20240823, end: 20240823

REACTIONS (1)
  - Full blood count decreased [Unknown]

NARRATIVE: CASE EVENT DATE: 20240829
